FAERS Safety Report 24179653 (Version 1)
Quarter: 2024Q3

REPORT INFORMATION
  Report Type: Spontaneous
  Country: US (occurrence: None)
  Receive Date: 20240805
  Receipt Date: 20240805
  Transmission Date: 20241017
  Serious: Yes (Disabling)
  Sender: Public
  Company Number: None

PATIENT
  Age: 68 Year
  Sex: Female
  Weight: 84.15 kg

DRUGS (14)
  1. VENLAFAXINE [Suspect]
     Active Substance: VENLAFAXINE HYDROCHLORIDE
     Indication: Anxiety
     Dosage: 270 TABLETS TWICE A DAY ORAL
     Route: 048
     Dates: start: 20240725
  2. VENLAFAXINE [Suspect]
     Active Substance: VENLAFAXINE HYDROCHLORIDE
     Indication: Depression
  3. OXYCODONE [Concomitant]
     Active Substance: OXYCODONE
  4. VENLAFAXINE [Concomitant]
     Active Substance: VENLAFAXINE HYDROCHLORIDE
  5. FLOVENT [Concomitant]
     Active Substance: FLUTICASONE PROPIONATE
  6. LEVALBUTEROL [Concomitant]
     Active Substance: LEVALBUTEROL
  7. OMEPRAZOLE [Concomitant]
     Active Substance: OMEPRAZOLE
  8. LOPERAMIDE [Concomitant]
     Active Substance: LOPERAMIDE
  9. ZOFRAN [Concomitant]
     Active Substance: ONDANSETRON HYDROCHLORIDE
  10. CYCLOBENZAPRINE [Concomitant]
     Active Substance: CYCLOBENZAPRINE
  11. MORPHINE [Concomitant]
     Active Substance: MORPHINE
  12. MELATONIN [Concomitant]
     Active Substance: MELATONIN
  13. Tylenol Extra Strength 2 [Concomitant]
  14. LORATADINE [Concomitant]
     Active Substance: LORATADINE

REACTIONS (5)
  - Menopausal symptoms [None]
  - Hyperhidrosis [None]
  - Flushing [None]
  - Temperature intolerance [None]
  - Therapy change [None]

NARRATIVE: CASE EVENT DATE: 20240726
